FAERS Safety Report 14323965 (Version 2)
Quarter: 2018Q3

REPORT INFORMATION
  Report Type: Spontaneous
  Country: ES (occurrence: ES)
  Receive Date: 20171226
  Receipt Date: 20180927
  Transmission Date: 20181010
  Serious: Yes (Death, Other)
  Sender: FDA-Public Use
  Company Number: ES-SUN PHARMACEUTICAL INDUSTRIES LTD-2017R1-157922

PATIENT
  Age: 39 Month
  Sex: Male
  Weight: 18 kg

DRUGS (5)
  1. PARACETAMOL [Suspect]
     Active Substance: ACETAMINOPHEN
     Indication: PAIN IN EXTREMITY
     Dosage: UNK
     Route: 065
     Dates: start: 20161115, end: 20161115
  2. ROTATEQ [Concomitant]
     Active Substance: HUMAN ROTAVIRUS A TYPE G1P7(5) STRAIN WI79 LIVE ANTIGEN\HUMAN ROTAVIRUS A TYPE G2P7(5) STRAIN SC2 LIVE ANTIGEN\HUMAN ROTAVIRUS A TYPE G3P7(5) STRAIN WI78 LIVE ANTIGEN\HUMAN ROTAVIRUS A TYPE G4P7(5) STRAIN BRB LIVE ANTIGEN\HUMAN ROTAVIRUS A TYPE G6P1A(8) STRAIN WI79 LIVE ANTIGEN
     Indication: PROPHYLAXIS
     Dosage: UNK
     Route: 048
  3. VARIVAX [Suspect]
     Active Substance: VARICELLA-ZOSTER VIRUS STRAIN OKA/MERCK LIVE ANTIGEN
     Indication: PRODUCT USED FOR UNKNOWN INDICATION
     Dosage: UNK
     Route: 065
     Dates: start: 20160720, end: 20160720
  4. SYNFLORIX [Concomitant]
     Active Substance: PNEUMOCOCCAL VACCINE POLYVALENT
     Indication: PRODUCT USED FOR UNKNOWN INDICATION
     Dosage: UNK
     Route: 065
  5. VARIVAX [Suspect]
     Active Substance: VARICELLA-ZOSTER VIRUS STRAIN OKA/MERCK LIVE ANTIGEN
     Indication: IMMUNISATION
     Dosage: 2 DOSIS SEPARADAS POR 3 MESES (RAM TRAS 2? DOSIS) ; IN TOTAL
     Route: 030
     Dates: start: 20161115, end: 20161115

REACTIONS (5)
  - Pain in extremity [Fatal]
  - Sudden death [Fatal]
  - Cardio-respiratory arrest [Fatal]
  - Pyrexia [Fatal]
  - Acute pulmonary oedema [Fatal]

NARRATIVE: CASE EVENT DATE: 20161115
